FAERS Safety Report 11760018 (Version 1)
Quarter: 2015Q4

REPORT INFORMATION
  Report Type: Report from Study
  Country: NL (occurrence: NL)
  Receive Date: 20151120
  Receipt Date: 20151120
  Transmission Date: 20160304
  Serious: Yes (Death)
  Sender: FDA-Public Use
  Company Number: NL-ABBVIE-15P-114-1493342-00

PATIENT
  Sex: Female

DRUGS (1)
  1. DUODOPA [Suspect]
     Active Substance: CARBIDOPA\LEVODOPA
     Indication: PARKINSON^S DISEASE
     Dosage: SEE NARRATIVE
     Route: 050
     Dates: start: 20130410

REACTIONS (11)
  - Dysphagia [Not Recovered/Not Resolved]
  - Depressed mood [Unknown]
  - Underweight [Unknown]
  - Hypophagia [Not Recovered/Not Resolved]
  - Pneumonia [Fatal]
  - Tension [Unknown]
  - Weight decreased [Not Recovered/Not Resolved]
  - Emotional disorder [Unknown]
  - Communication disorder [Not Recovered/Not Resolved]
  - Speech disorder [Not Recovered/Not Resolved]
  - Dyskinesia [Not Recovered/Not Resolved]
